FAERS Safety Report 9743295 (Version 2)
Quarter: 2013Q4

REPORT INFORMATION
  Report Type: Spontaneous
  Country: US (occurrence: US)
  Receive Date: 20131210
  Receipt Date: 20131210
  Transmission Date: 20140711
  Serious: No
  Sender: FDA-Public Use
  Company Number: US-GILEAD-2009-0025016

PATIENT
  Sex: Female
  Weight: 108.41 kg

DRUGS (11)
  1. LETAIRIS [Suspect]
     Indication: PULMONARY ARTERIAL HYPERTENSION
     Route: 048
     Dates: start: 20071212, end: 20091028
  2. REVATIO [Concomitant]
  3. COUMADIN [Concomitant]
  4. DEMADEX [Concomitant]
  5. SINGULAIR [Concomitant]
  6. LIPITOR [Concomitant]
  7. TEKTURNA [Concomitant]
  8. ZANTAC [Concomitant]
  9. POTASSIUM CHLORIDE [Concomitant]
  10. LOTREL [Concomitant]
  11. NITROSTAT [Concomitant]

REACTIONS (1)
  - Drug ineffective [Unknown]
